FAERS Safety Report 19685724 (Version 1)
Quarter: 2021Q3

REPORT INFORMATION
  Report Type: Spontaneous
  Country: US (occurrence: US)
  Receive Date: 20210811
  Receipt Date: 20210811
  Transmission Date: 20211014
  Serious: No
  Sender: FDA-Public Use
  Company Number: None

PATIENT
  Sex: Male

DRUGS (1)
  1. TOBRAMYCIN (56AMPS/28 DAY) [Suspect]
     Active Substance: TOBRAMYCIN
     Indication: RESPIRATORY DISORDER
     Dosage: CONTENTS OF 1 AMPU;E VIA NEBULIZIER TWICE DAILY FOR 28 DAYS ON, THEN 28 DAYS OFF
     Dates: start: 2020

REACTIONS (1)
  - Lung neoplasm malignant [None]
